FAERS Safety Report 8834077 (Version 2)
Quarter: 2012Q4

REPORT INFORMATION
  Report Type: 
  Country: US (occurrence: US)
  Receive Date: 20121010
  Receipt Date: 20121016
  Transmission Date: 20130627
  Serious: No
  Sender: FDA-Public Use
  Company Number: US-ASTRAZENECA-2012SE75826

PATIENT
  Age: 58 Year
  Sex: Female

DRUGS (1)
  1. NEXIUM [Suspect]
     Route: 048

REACTIONS (6)
  - Adverse event [Unknown]
  - Pain [Unknown]
  - Dyspepsia [Unknown]
  - Discomfort [Unknown]
  - Drug dose omission [Unknown]
  - Intentional drug misuse [Unknown]
